FAERS Safety Report 6973875-X (Version None)
Quarter: 2010Q3

REPORT INFORMATION
  Report Type: 
  Country: None (occurrence: None)
  Receive Date: 20100909
  Receipt Date: 20100908
  Transmission Date: 20110219
  Serious: Yes (Other)
  Sender: FDA-Public Use
  Company Number: B0673562A

PATIENT
  Age: 62 Year
  Sex: Female
  Weight: 71.5 kg

DRUGS (7)
  1. FLUTICASONE FUROATE [Suspect]
     Dosage: 4IUAX PER DAY
     Route: 045
     Dates: start: 20100218, end: 20100725
  2. ESOMEPRAZOLE MAGNESIUM [Concomitant]
     Route: 048
     Dates: start: 20090616
  3. HYOSCINE [Concomitant]
     Indication: IRRITABLE BOWEL SYNDROME
     Route: 048
     Dates: start: 20081107
  4. PROCHLORPERAZINE [Concomitant]
     Indication: NAUSEA
     Route: 048
     Dates: start: 20080411
  5. LORATADINE [Concomitant]
     Route: 048
     Dates: start: 20090303
  6. BUDESONIDE [Concomitant]
     Indication: ASTHMA
     Dosage: 4IUAX PER DAY
     Dates: start: 20080211
  7. TERBUTALINE SULFATE [Concomitant]
     Indication: ASTHMA
     Dates: start: 20080527

REACTIONS (1)
  - HAIR GROWTH ABNORMAL [None]
